FAERS Safety Report 17826115 (Version 1)
Quarter: 2020Q2

REPORT INFORMATION
  Report Type: Spontaneous
  Country: GB (occurrence: GB)
  Receive Date: 20200526
  Receipt Date: 20200526
  Transmission Date: 20200714
  Serious: Yes (Other)
  Sender: FDA-Public Use
  Company Number: GB-MYLANLABS-2020M1050974

PATIENT
  Age: 38 Year
  Sex: Male
  Weight: 95.25 kg

DRUGS (2)
  1. MELATONIN [Suspect]
     Active Substance: MELATONIN
     Indication: INSOMNIA
     Dosage: 2 MILLIGRAM
     Route: 048
     Dates: start: 20200107, end: 20200109
  2. BISOPROLOL [Suspect]
     Active Substance: BISOPROLOL
     Indication: CHEST PAIN
     Dosage: 7.5 MILLIGRAM
     Dates: start: 20160903

REACTIONS (4)
  - Fatigue [Unknown]
  - Palpitations [Recovered/Resolved]
  - Chest pain [Recovered/Resolved]
  - Asthenopia [Unknown]

NARRATIVE: CASE EVENT DATE: 20200107
